FAERS Safety Report 8455035-9 (Version None)
Quarter: 2012Q2

REPORT INFORMATION
  Report Type: 
  Country: None (occurrence: None)
  Receive Date: 20120621
  Receipt Date: 20120612
  Transmission Date: 20120825
  Serious: Yes (Hospitalization)
  Sender: FDA-Public Use
  Company Number: ES-SANOFI-AVENTIS-2012SA031955

PATIENT
  Age: 76 Year
  Sex: Male
  Weight: 90 kg

DRUGS (9)
  1. CABAZITAXEL [Suspect]
     Indication: PROSTATE CANCER METASTATIC
     Route: 042
     Dates: start: 20120102, end: 20120102
  2. PREDNISONE TAB [Suspect]
     Indication: PROSTATE CANCER METASTATIC
     Route: 048
     Dates: start: 20120102, end: 20120502
  3. PANTOPRAZOLE [Concomitant]
     Route: 048
  4. CABAZITAXEL [Suspect]
     Route: 042
     Dates: start: 20120411, end: 20120411
  5. AMLODIPINE [Concomitant]
     Route: 048
  6. SPIRIVA [Concomitant]
     Route: 055
  7. PLANTABEN [Concomitant]
     Route: 048
  8. BUDESONIDE/FORMOTEROL [Concomitant]
     Route: 055
  9. HEPARIN [Concomitant]
     Route: 058

REACTIONS (1)
  - CHRONIC OBSTRUCTIVE PULMONARY DISEASE [None]
